FAERS Safety Report 11867968 (Version 1)
Quarter: 2015Q4

REPORT INFORMATION
  Report Type: Spontaneous
  Country: RS (occurrence: RS)
  Receive Date: 20151224
  Receipt Date: 20151224
  Transmission Date: 20160305
  Serious: Yes (Other)
  Sender: FDA-Public Use
  Company Number: RS-BAUSCH-BL-2015-030469

PATIENT
  Sex: Male

DRUGS (7)
  1. DICLOFENAC [Suspect]
     Active Substance: DICLOFENAC
     Indication: PAIN
  2. ZOSTIN [Concomitant]
     Indication: PRODUCT USED FOR UNKNOWN INDICATION
  3. DAMATON [Concomitant]
     Indication: PRODUCT USED FOR UNKNOWN INDICATION
  4. BRUFEN [Suspect]
     Active Substance: IBUPROFEN
     Indication: PAIN
  5. CARDIOPIRIN [Concomitant]
     Active Substance: ASPIRIN
     Indication: PRODUCT USED FOR UNKNOWN INDICATION
  6. RAPIDOL [Suspect]
     Active Substance: IBUPROFEN
     Indication: PAIN
     Dosage: APPROXIMATELY 3 TIMES A WEEK
     Dates: end: 20151214
  7. AMLODIPINE [Concomitant]
     Active Substance: AMLODIPINE BESYLATE
     Indication: HYPERTENSION

REACTIONS (4)
  - Asphyxia [Recovered/Resolved]
  - Nausea [Recovered/Resolved]
  - Haemoptysis [Not Recovered/Not Resolved]
  - Abdominal pain upper [Recovered/Resolved]
